FAERS Safety Report 8980140 (Version 1)
Quarter: 2012Q4

REPORT INFORMATION
  Report Type: 
  Country: IN (occurrence: IN)
  Receive Date: 20121221
  Receipt Date: 20121221
  Transmission Date: 20130627
  Serious: Yes (Other)
  Sender: FDA-Public Use
  Company Number: PHHY2012IN115853

PATIENT
  Age: 9 Year
  Sex: Female

DRUGS (1)
  1. CARBAMAZEPINE [Suspect]
     Dosage: UNK

REACTIONS (5)
  - Myoclonic epilepsy [Recovered/Resolved]
  - Excessive eye blinking [Recovered/Resolved]
  - Petit mal epilepsy [Recovered/Resolved]
  - Performance status decreased [Unknown]
  - Dizziness [Unknown]
